FAERS Safety Report 5148715-4 (Version None)
Quarter: 2006Q4

REPORT INFORMATION
  Report Type: 
  Country: None (occurrence: None)
  Receive Date: 20061113
  Receipt Date: 20050404
  Transmission Date: 20070319
  Serious: Yes (Hospitalization, Other)
  Sender: FDA-Public Use
  Company Number: JP-NOVOPROD-243357

PATIENT
  Age: 3 Year
  Sex: Male
  Weight: 14 kg

DRUGS (1)
  1. NORDITROPIN SIMPLEXX [Suspect]
     Indication: HYPOCHONDROPLASIA
     Dosage: 0.7-0.8MG
     Route: 058
     Dates: start: 20040305

REACTIONS (2)
  - CONDITION AGGRAVATED [None]
  - CONGENITAL KNEE DEFORMITY [None]
